FAERS Safety Report 7474842-2 (Version None)
Quarter: 2011Q2

REPORT INFORMATION
  Report Type: 
  Country: None (occurrence: None)
  Receive Date: 20110512
  Receipt Date: 20110405
  Transmission Date: 20111010
  Serious: Yes (Other)
  Sender: FDA-Public Use
  Company Number: US-BAYER-201034587NA

PATIENT
  Age: 23 Year
  Sex: Female
  Weight: 90.703 kg

DRUGS (1)
  1. YASMIN [Suspect]
     Indication: PRODUCT USED FOR UNKNOWN INDICATION
     Route: 048
     Dates: start: 20010101, end: 20070615

REACTIONS (3)
  - APPENDICECTOMY [None]
  - APPENDICITIS [None]
  - GALLBLADDER DISORDER [None]
